FAERS Safety Report 9119978 (Version 3)
Quarter: 2013Q2

REPORT INFORMATION
  Report Type: Report from Study
  Country: US (occurrence: US)
  Receive Date: 20130226
  Receipt Date: 20130419
  Transmission Date: 20140414
  Serious: Yes (Death, Hospitalization)
  Sender: FDA-Public Use
  Company Number: US-ASTELLAS-2013US001978

PATIENT
  Age: 72 Year
  Sex: Female

DRUGS (3)
  1. ERLOTINIB TABLET [Suspect]
     Indication: NON-SMALL CELL LUNG CANCER
     Dosage: 150 MG, UID/QD
     Route: 048
     Dates: start: 20130208, end: 20130216
  2. ERLOTINIB TABLET [Suspect]
     Dosage: 150 MG, UID/QD
     Route: 048
     Dates: start: 201302, end: 201302
  3. ERLOTINIB TABLET [Suspect]
     Dosage: 150 MG, UID/QD
     Route: 048
     Dates: start: 20130207

REACTIONS (10)
  - Death [Fatal]
  - Pulmonary oedema [Recovered/Resolved]
  - Fatigue [Recovered/Resolved]
  - Dyspnoea [Not Recovered/Not Resolved]
  - Skin tightness [Not Recovered/Not Resolved]
  - Rash [Not Recovered/Not Resolved]
  - Diarrhoea [Not Recovered/Not Resolved]
  - Dry skin [Not Recovered/Not Resolved]
  - Clostridium difficile infection [Not Recovered/Not Resolved]
  - Asthenia [Not Recovered/Not Resolved]
